FAERS Safety Report 11836809 (Version 2)
Quarter: 2016Q1

REPORT INFORMATION
  Report Type: Spontaneous
  Country: ES (occurrence: ES)
  Receive Date: 20151215
  Receipt Date: 20160120
  Transmission Date: 20160525
  Serious: Yes (Death, Hospitalization)
  Sender: FDA-Public Use
  Company Number: ES-SA-2015SA209753

PATIENT
  Age: 80 Year
  Sex: Male

DRUGS (11)
  1. TAMSULOSIN [Concomitant]
     Active Substance: TAMSULOSIN
     Dosage: 0-0-1
  2. HYDROCHLOROTHIAZIDE/CAPTOPRIL [Concomitant]
     Dosage: DOSE: 1-0-0
  3. OMEPRAZOLE. [Concomitant]
     Active Substance: OMEPRAZOLE
     Dosage: 1-0-0
  4. LANTUS [Suspect]
     Active Substance: INSULIN GLARGINE
     Indication: DIABETES MELLITUS
     Route: 058
     Dates: start: 2015, end: 20151019
  5. METFORMIN [Interacting]
     Active Substance: METFORMIN HYDROCHLORIDE
     Indication: DIABETES MELLITUS
     Route: 048
     Dates: start: 201510, end: 20151021
  6. ADIRO [Concomitant]
     Active Substance: ASPIRIN
     Dosage: 1-0-0
  7. DILTIAZEM [Concomitant]
     Active Substance: DILTIAZEM
     Dosage: 1-0-0
  8. METFORMIN [Interacting]
     Active Substance: METFORMIN HYDROCHLORIDE
     Indication: DIABETES MELLITUS
     Route: 048
     Dates: start: 2015, end: 20151019
  9. PERMIXON [Concomitant]
     Active Substance: SAW PALMETTO
  10. SIMVASTATIN. [Concomitant]
     Active Substance: SIMVASTATIN
     Dosage: 0-0-1
  11. LANTUS [Interacting]
     Active Substance: INSULIN GLARGINE
     Indication: DIABETES MELLITUS
     Route: 058
     Dates: end: 20151021

REACTIONS (7)
  - Drug interaction [Unknown]
  - Hypoglycaemia [Recovered/Resolved]
  - Altered state of consciousness [Recovered/Resolved]
  - Aspiration bronchial [Fatal]
  - Musculoskeletal stiffness [Recovered/Resolved]
  - Hyperhidrosis [Fatal]
  - Incorrect dose administered [Unknown]

NARRATIVE: CASE EVENT DATE: 2015
